FAERS Safety Report 9791564 (Version 2)
Quarter: 2014Q1

REPORT INFORMATION
  Report Type: Report from Study
  Country: TR (occurrence: TR)
  Receive Date: 20140101
  Receipt Date: 20140225
  Transmission Date: 20141002
  Serious: Yes (Hospitalization, Other)
  Sender: FDA-Public Use
  Company Number: PHHY2013TR152531

PATIENT
  Age: 49 Year
  Sex: Male
  Weight: 95 kg

DRUGS (11)
  1. DIGOXIN [Suspect]
     Dosage: 200 MG, UNK
  2. ECOPIRIN [Suspect]
     Dosage: 150 MG, DAILY
  3. ECOPIRIN [Suspect]
     Dosage: UNK UKN, UNK
  4. CORDARONE [Suspect]
     Dosage: 200 MG, DAILY
  5. CORASPIN [Suspect]
     Dosage: 100 MG, QD
  6. BELOC [Concomitant]
     Indication: ATRIAL FIBRILLATION
     Dosage: 50 MG, UNK
  7. INSULIN [Concomitant]
     Indication: DIABETES MELLITUS
     Dosage: UNK UKN, UNK
     Route: 048
  8. BETABLOCK [Concomitant]
     Indication: CARDIAC FAILURE
  9. DIURETICS [Concomitant]
     Indication: CARDIAC FAILURE
  10. MONODUR [Concomitant]
  11. ASPIRIN [Suspect]
     Dosage: 100 MG, UNK

REACTIONS (15)
  - Small intestinal haemorrhage [Not Recovered/Not Resolved]
  - Cardiac failure [Unknown]
  - Arrhythmia [Unknown]
  - Cerebrovascular accident [Unknown]
  - Ejection fraction decreased [Unknown]
  - Atrial fibrillation [Unknown]
  - Pulmonary arterial pressure abnormal [Unknown]
  - Mitral valve incompetence [Unknown]
  - Tricuspid valve incompetence [Unknown]
  - Blood glucose increased [Unknown]
  - High density lipoprotein decreased [Unknown]
  - Heart rate increased [Unknown]
  - Left ventricular end-diastolic pressure increased [Unknown]
  - Ventricular hypertrophy [Unknown]
  - Left atrial dilatation [Unknown]
